FAERS Safety Report 14523557 (Version 5)
Quarter: 2018Q2

REPORT INFORMATION
  Report Type: Spontaneous
  Country: IT (occurrence: IT)
  Receive Date: 20180212
  Receipt Date: 20180403
  Transmission Date: 20180711
  Serious: Yes (Other)
  Sender: FDA-Public Use
  Company Number: IT-UCBSA-2018004980

PATIENT
  Age: 34 Year
  Sex: Female

DRUGS (5)
  1. PROGEFFIK [Concomitant]
     Active Substance: PROGESTERONE
     Indication: PRODUCT USED FOR UNKNOWN INDICATION
     Dosage: 200 MG, ONCE DAILY (QD)
  2. FOLIC ACID. [Concomitant]
     Active Substance: FOLIC ACID
     Indication: PRODUCT USED FOR UNKNOWN INDICATION
     Dosage: 1000 ?G, ONCE DAILY (QD)
     Dates: start: 20170210
  3. BUSCOPAN [Concomitant]
     Active Substance: BUTYLSCOPOLAMINE BROMIDE
     Indication: PRODUCT USED FOR UNKNOWN INDICATION
     Dosage: 10 MG, ONCE DAILY (QD)
  4. LEVETIRACETAM. [Suspect]
     Active Substance: LEVETIRACETAM
     Indication: EPILEPSY
     Dosage: UNK
  5. RUFINAMIDE [Suspect]
     Active Substance: RUFINAMIDE
     Indication: PARTIAL SEIZURES
     Dosage: 800 MG, DAILY (2 ADMINISTRATIONS AT THE MAXIMUM SINGLE DOSE OF 400 MG)
     Route: 048
     Dates: start: 20121205

REACTIONS (6)
  - Off label use [Unknown]
  - Urinary tract infection [Unknown]
  - Abortion spontaneous [Unknown]
  - Twin pregnancy [Unknown]
  - Premature rupture of membranes [Unknown]
  - Stillbirth [Recovered/Resolved]

NARRATIVE: CASE EVENT DATE: 2017
